FAERS Safety Report 9394371 (Version 2)
Quarter: 2013Q3

REPORT INFORMATION
  Report Type: Spontaneous
  Country: US (occurrence: US)
  Receive Date: 20130711
  Receipt Date: 20130814
  Transmission Date: 20140515
  Serious: Yes (Death)
  Sender: FDA-Public Use
  Company Number: US-009507513-1307USA004931

PATIENT
  Age: 50 Year
  Sex: Female

DRUGS (12)
  1. ELAVIL (MADE BY MERCK, MARKETED BY ZENECA) [Suspect]
     Route: 048
  2. HYDROXYZINE [Suspect]
     Dosage: 100 MG DAILY DOSE (4, 25 MG TABLETS)
  3. OXYCODONE [Suspect]
  4. HYDROMORPHONE [Suspect]
  5. NORTRIPTYLINE [Suspect]
  6. ZOLPIDEM TARTRATE [Suspect]
  7. CARISOPRODOL [Suspect]
  8. MEPROBAMATE [Suspect]
  9. ACETAMINOPHEN [Suspect]
  10. DULOXETINE HYDROCHLORIDE [Suspect]
  11. PAROXETINE [Suspect]
  12. GABAPENTIN [Suspect]

REACTIONS (2)
  - Accidental overdose [Fatal]
  - Toxicity to various agents [Fatal]
